FAERS Safety Report 4912587-0 (Version None)
Quarter: 2006Q1

REPORT INFORMATION
  Report Type: 
  Country: None (occurrence: None)
  Receive Date: 20060215
  Receipt Date: 20060213
  Transmission Date: 20060701
  Serious: Yes (Other)
  Sender: FDA-Public Use
  Company Number: US-GLAXOSMITHKLINE-A0593497A

PATIENT
  Age: 60 Year
  Sex: Female

DRUGS (2)
  1. RELAFEN [Suspect]
     Indication: ARTHRITIS
     Route: 048
     Dates: start: 19900101
  2. NO CONCURRENT MEDICATION [Concomitant]

REACTIONS (2)
  - PORPHYRIA NON-ACUTE [None]
  - SKIN ATROPHY [None]
